FAERS Safety Report 5373232-6 (Version None)
Quarter: 2007Q2

REPORT INFORMATION
  Report Type: 
  Country: None (occurrence: None)
  Receive Date: 20070628
  Receipt Date: 20070621
  Transmission Date: 20071010
  Serious: Yes (Other)
  Sender: FDA-Public Use
  Company Number: PHBS2007BR10728

PATIENT
  Age: 70 Year
  Sex: Male
  Weight: 78 kg

DRUGS (7)
  1. DIOCOMB SI [Suspect]
     Indication: HYPERTENSION
     Dosage: VALS 160 / SIMV 20 MG/DAY
     Route: 048
  2. MONOCORDIL [Concomitant]
     Indication: VASODILATATION
     Dosage: 20 MG, BID
     Route: 048
  3. PRATIPRAZOL [Concomitant]
     Indication: GASTRIC ULCER
     Dosage: 20 MG, QD
     Route: 048
  4. SOMALGIN [Concomitant]
     Dosage: 325 MG, QD
     Route: 048
  5. DIGOBAL [Concomitant]
     Indication: CARDIAC DISORDER
     Dosage: 0.125 MG, QD
     Route: 048
  6. ANCORON [Concomitant]
     Indication: TACHYCARDIA
     Dosage: 200 MG, QD
     Route: 048
  7. CAPTOPRIL [Concomitant]
     Indication: HYPERTENSION
     Dosage: 25 MG, TID
     Route: 048

REACTIONS (5)
  - BLOOD PRESSURE INCREASED [None]
  - CONSTIPATION [None]
  - FLATULENCE [None]
  - PRURITUS [None]
  - URTICARIA [None]
